FAERS Safety Report 25771460 (Version 1)
Quarter: 2025Q3

REPORT INFORMATION
  Report Type: Spontaneous
  Country: US (occurrence: US)
  Receive Date: 20250908
  Receipt Date: 20250908
  Transmission Date: 20251020
  Serious: Yes (Other)
  Sender: HIKMA
  Company Number: HIKM2508784

PATIENT
  Sex: Female

DRUGS (1)
  1. CEFTRIAXONE [Suspect]
     Active Substance: CEFTRIAXONE
     Indication: Product used for unknown indication
     Route: 042

REACTIONS (4)
  - Anaphylactic reaction [Unknown]
  - Burning sensation [Unknown]
  - Hypoxia [Unknown]
  - Hypotension [Unknown]
